FAERS Safety Report 19069834 (Version 2)
Quarter: 2021Q1

REPORT INFORMATION
  Report Type: Spontaneous
  Country: CN (occurrence: CN)
  Receive Date: 20210329
  Receipt Date: 20210331
  Transmission Date: 20210420
  Serious: Yes (Hospitalization)
  Sender: FDA-Public Use
  Company Number: CN-PFIZER INC-2021307704

PATIENT
  Age: 11 Month
  Sex: Male
  Weight: 9.5 kg

DRUGS (2)
  1. CYTARABINE. [Suspect]
     Active Substance: CYTARABINE
     Indication: ACUTE MYELOID LEUKAEMIA
     Dosage: 2.4 G, 1X/DAY
     Route: 041
     Dates: start: 20210310, end: 20210313
  2. ETOPOSIDE. [Suspect]
     Active Substance: ETOPOSIDE
     Indication: ACUTE MYELOID LEUKAEMIA
     Dosage: 0.12 G, 1X/DAY
     Route: 041
     Dates: start: 20210310, end: 20210313

REACTIONS (3)
  - Infantile vomiting [Unknown]
  - Abdominal pain [Unknown]
  - Myelosuppression [Unknown]

NARRATIVE: CASE EVENT DATE: 20210312
